FAERS Safety Report 4944099-2 (Version None)
Quarter: 2006Q1

REPORT INFORMATION
  Report Type: 
  Country: None (occurrence: None)
  Receive Date: 20060309
  Receipt Date: 20060228
  Transmission Date: 20060701
  Serious: Yes (Death)
  Sender: FDA-Public Use
  Company Number: 2005-US-01371

PATIENT
  Age: 55 Year
  Sex: Female

DRUGS (3)
  1. CLOZAPINE [Suspect]
     Indication: SCHIZOPHRENIA
     Dosage: 350 MG, QD, ORAL
     Route: 048
     Dates: start: 20031001
  2. LORAZEPAM [Concomitant]
  3. QUETIAPINE [Concomitant]

REACTIONS (1)
  - DEATH [None]
